FAERS Safety Report 9404227 (Version 1)
Quarter: 2013Q3

REPORT INFORMATION
  Report Type: Spontaneous
  Country: NO (occurrence: NO)
  Receive Date: 20130717
  Receipt Date: 20130717
  Transmission Date: 20140515
  Serious: Yes (Hospitalization)
  Sender: FDA-Public Use
  Company Number: NO-US-EMD SERONO, INC.-E2B_7222645

PATIENT
  Age: 21 Year
  Sex: Male

DRUGS (5)
  1. SOMATROPIN [Suspect]
     Indication: PRODUCT USED FOR UNKNOWN INDICATION
     Dosage: UNKNOWN DOSAGE
     Dates: start: 201108, end: 20111212
  2. OXYMETHOLONE [Suspect]
     Indication: PRODUCT USED FOR UNKNOWN INDICATION
     Dosage: UNKNOWN DOSAGE
     Dates: start: 201108, end: 20111212
  3. TRENBOLONE [Suspect]
     Indication: PRODUCT USED FOR UNKNOWN INDICATION
     Dosage: UNKNOWN DOSAGE
     Dates: start: 201108, end: 20111212
  4. ARIMIDEX [Concomitant]
     Indication: PRODUCT USED FOR UNKNOWN INDICATION
  5. VENLAFAXINE [Concomitant]
     Indication: PRODUCT USED FOR UNKNOWN INDICATION

REACTIONS (1)
  - Glomerulonephritis membranous [Recovering/Resolving]
